FAERS Safety Report 15678549 (Version 2)
Quarter: 2020Q1

REPORT INFORMATION
  Report Type: Report from Study
  Country: EG (occurrence: EG)
  Receive Date: 20181201
  Receipt Date: 20200131
  Transmission Date: 20200409
  Serious: Yes (Death, Other)
  Sender: FDA-Public Use
  Company Number: PHHY2018EG168178

PATIENT
  Age: 55 Year
  Sex: Female

DRUGS (2)
  1. TASIGNA [Suspect]
     Active Substance: NILOTINIB
     Indication: CHRONIC MYELOID LEUKAEMIA
     Dosage: 150 MG, QD
     Route: 048
     Dates: start: 2016, end: 201711
  2. CONCOR [Concomitant]
     Active Substance: BISOPROLOL FUMARATE
     Indication: PRODUCT USED FOR UNKNOWN INDICATION
     Dosage: 2.5 MG, UNK
     Route: 065

REACTIONS (4)
  - Cardiac arrest [Fatal]
  - Thrombosis [Not Recovered/Not Resolved]
  - Cytogenetic analysis abnormal [Not Recovered/Not Resolved]
  - Inappropriate schedule of product administration [Unknown]

NARRATIVE: CASE EVENT DATE: 2016
